FAERS Safety Report 10566703 (Version 2)
Quarter: 2014Q4

REPORT INFORMATION
  Report Type: Report from Study
  Country: BR (occurrence: BR)
  Receive Date: 20141105
  Receipt Date: 20141105
  Transmission Date: 20150529
  Serious: Yes (Hospitalization, Other)
  Sender: FDA-Public Use
  Company Number: BR-ABBVIE-10P-020-0679416-00

PATIENT
  Age: 46 Year
  Sex: Female
  Weight: 80 kg

DRUGS (19)
  1. OMEPRAZOLE. [Concomitant]
     Active Substance: OMEPRAZOLE
     Indication: GASTRIC DISORDER
     Dosage: AT, FASTING
     Route: 048
  2. PROPANOL [Concomitant]
     Active Substance: PROPRANOLOL HYDROCHLORIDE
     Indication: HYPOTHYROIDISM
     Dosage: 50 MG OR 10 MG, 8 IN 24 HOURS
     Route: 048
     Dates: start: 200710
  3. ENDOFOLIN [Concomitant]
     Active Substance: FOLIC ACID
     Indication: LIVER DISORDER
     Route: 048
  4. HUMIRA [Suspect]
     Active Substance: ADALIMUMAB
     Indication: RHEUMATOID ARTHRITIS
     Route: 058
     Dates: start: 20060712, end: 20140530
  5. ASPIRINA PREVENT [Concomitant]
     Active Substance: ASPIRIN
     Indication: ISCHAEMIC HEART DISEASE PROPHYLAXIS
     Route: 048
  6. INDOCID [Concomitant]
     Active Substance: INDOMETHACIN
     Indication: INFLAMMATION
     Route: 048
  7. ENDOFOLIN [Concomitant]
     Active Substance: FOLIC ACID
     Indication: PROPHYLAXIS
  8. THYROID [Suspect]
     Active Substance: LEVOTHYROXINE\LIOTHYRONINE
     Indication: PRODUCT USED FOR UNKNOWN INDICATION
     Route: 065
  9. ENDOFOLIN [Concomitant]
     Active Substance: FOLIC ACID
     Indication: RENAL DISORDER
  10. INDOCID [Concomitant]
     Active Substance: INDOMETHACIN
     Indication: PROPHYLAXIS
  11. ENDOFOLIN [Concomitant]
     Active Substance: FOLIC ACID
     Indication: LIVER DISORDER
  12. METHOTREXATE [Concomitant]
     Active Substance: METHOTREXATE
     Indication: RHEUMATOID ARTHRITIS
     Route: 048
     Dates: start: 2003
  13. NAPROXEN. [Concomitant]
     Active Substance: NAPROXEN
     Indication: ARTHRITIS
  14. LEVOID [Concomitant]
     Active Substance: LEVOTHYROXINE
     Indication: HORMONE REPLACEMENT THERAPY
     Dosage: AT FASTING, IN THE MORNING
     Route: 048
     Dates: start: 2008
  15. NAPROXEN. [Concomitant]
     Active Substance: NAPROXEN
     Indication: PAIN
     Route: 048
     Dates: end: 20101016
  16. ENDOFOLIN [Concomitant]
     Active Substance: FOLIC ACID
     Indication: PROPHYLAXIS
     Route: 048
  17. ENDOFOLIN [Concomitant]
     Active Substance: FOLIC ACID
     Indication: PROPHYLAXIS
  18. ARTROLIVE [Concomitant]
     Active Substance: CHONDROITIN SULFATE (BOVINE)\GLUCOSAMINE SULFATE
     Indication: CHONDROPATHY
     Dosage: GLUCOSAMINE SULFATE 500MG; CHONDROITIN SULFATE 400MG
     Route: 048
  19. DIPYRONE [Concomitant]
     Active Substance: DIPYRONE
     Indication: PAIN
     Route: 048

REACTIONS (11)
  - Arthralgia [Recovering/Resolving]
  - Gastritis [Recovered/Resolved]
  - Injection site pruritus [Recovered/Resolved]
  - Injection site erythema [Recovering/Resolving]
  - Thyroid function test abnormal [Recovered/Resolved]
  - Eye swelling [Recovered/Resolved]
  - Autoimmune thyroiditis [Recovered/Resolved]
  - Hypersensitivity [Unknown]
  - Hypothyroidism [Recovered/Resolved]
  - Injection site warmth [Recovered/Resolved]
  - Gastrooesophageal reflux disease [Recovered/Resolved]

NARRATIVE: CASE EVENT DATE: 2007
